FAERS Safety Report 12825506 (Version 1)
Quarter: 2016Q4

REPORT INFORMATION
  Report Type: Spontaneous
  Country: US (occurrence: US)
  Receive Date: 20161007
  Receipt Date: 20161007
  Transmission Date: 20170207
  Serious: Yes (Other)
  Sender: FDA-Public Use
  Company Number: None

PATIENT
  Age: 90 Year
  Sex: Male
  Weight: 66.8 kg

DRUGS (2)
  1. CIPROFLOXACIN. [Suspect]
     Active Substance: CIPROFLOXACIN
     Indication: CELLULITIS
     Route: 048
     Dates: start: 20160822, end: 20160826
  2. CIPROFLOXACIN. [Suspect]
     Active Substance: CIPROFLOXACIN
     Indication: DIABETES MELLITUS
     Route: 048
     Dates: start: 20160822, end: 20160826

REACTIONS (2)
  - Vasculitis [None]
  - Hypersensitivity [None]

NARRATIVE: CASE EVENT DATE: 20160826
